FAERS Safety Report 20815643 (Version 1)
Quarter: 2022Q2

REPORT INFORMATION
  Report Type: Spontaneous
  Country: US (occurrence: US)
  Receive Date: 20220511
  Receipt Date: 20220511
  Transmission Date: 20220721
  Serious: No
  Sender: FDA-Public Use
  Company Number: US-PFIZER INC-202101439622

PATIENT
  Sex: Female

DRUGS (1)
  1. METHIMAZOLE [Suspect]
     Active Substance: METHIMAZOLE
     Dosage: UNK

REACTIONS (1)
  - Drug hypersensitivity [Unknown]
